FAERS Safety Report 9507354 (Version 4)
Quarter: 2013Q4

REPORT INFORMATION
  Report Type: Spontaneous
  Country: IT (occurrence: IT)
  Receive Date: 20130909
  Receipt Date: 20131105
  Transmission Date: 20140711
  Serious: Yes (Hospitalization)
  Sender: FDA-Public Use
  Company Number: IT-PFIZER INC-2013256882

PATIENT
  Age: 73 Year
  Sex: Female

DRUGS (8)
  1. NORVASC [Suspect]
     Dosage: 13 DF, TOTAL
     Route: 048
     Dates: start: 20130828, end: 20130828
  2. TAVOR [Suspect]
     Dosage: 20 DF, TOTAL
     Route: 048
     Dates: start: 20130828, end: 20130828
  3. COTAREG [Suspect]
     Dosage: 5 DF, TOTAL
     Route: 048
     Dates: start: 20130828, end: 20130828
  4. KEPPRA [Concomitant]
     Indication: EPILEPSY
  5. DIBASE [Concomitant]
  6. ESKIM [Concomitant]
  7. PROVISACOR [Concomitant]
  8. CARDIOASPIRIN [Concomitant]

REACTIONS (5)
  - Intentional self-injury [Recovered/Resolved]
  - Intentional overdose [Recovered/Resolved]
  - Bradykinesia [Recovered/Resolved]
  - Hypotension [Recovered/Resolved]
  - Bradyphrenia [Recovered/Resolved]
